FAERS Safety Report 8537234-0 (Version None)
Quarter: 2012Q3

REPORT INFORMATION
  Report Type: 
  Country: None (occurrence: None)
  Receive Date: 20120725
  Receipt Date: 20120716
  Transmission Date: 20120928
  Serious: Yes (Hospitalization)
  Sender: FDA-Public Use
  Company Number: US-ELI_LILLY_AND_COMPANY-US201206003874

PATIENT
  Sex: Male
  Weight: 61.678 kg

DRUGS (18)
  1. PENNSAID [Concomitant]
     Indication: PRODUCT USED FOR UNKNOWN INDICATION
     Dosage: UNK, QID
     Dates: start: 20120320
  2. ZYRTEC [Concomitant]
     Indication: RHINITIS ALLERGIC
     Dosage: 10 MG, UNK
  3. RANITIDINE [Concomitant]
     Indication: BARRETT'S OESOPHAGUS
     Dosage: 150 MG, EACH EVENING
     Dates: start: 20111223
  4. LISINOPRIL AND HYDROCHLOROTHIAZIDE [Concomitant]
     Indication: HYPERTENSION
     Dosage: UNK, QD
     Route: 048
  5. B COMPLETE                         /06817001/ [Concomitant]
     Indication: ROUTINE HEALTH MAINTENANCE
     Dosage: UNK
     Route: 048
     Dates: start: 20120228
  6. MULTI-VITAMIN [Concomitant]
     Indication: ROUTINE HEALTH MAINTENANCE
     Dosage: UNK, QD
     Route: 048
     Dates: start: 20120228
  7. LOVAZA [Concomitant]
     Indication: ROUTINE HEALTH MAINTENANCE
     Dosage: UNK, QD
     Route: 048
     Dates: start: 20120228
  8. GABAPENTIN [Concomitant]
     Indication: NEUROPATHY PERIPHERAL
     Dosage: UNK, EACH EVENING
     Route: 048
     Dates: start: 20111228
  9. MAGNESIUM SULFATE [Concomitant]
     Indication: NEUROPATHY PERIPHERAL
     Dosage: 250 MG, BID
     Route: 048
  10. ANDROGEL [Concomitant]
     Indication: PRIMARY HYPOGONADISM
     Dosage: UNK
     Route: 062
     Dates: start: 20110609
  11. CELEBREX [Concomitant]
     Indication: BACK PAIN
     Dosage: 200 MG, QD
     Route: 048
     Dates: start: 20111026
  12. CARBIDOPA AND LEVODOPA [Concomitant]
     Indication: PARKINSON'S DISEASE
     Dosage: UNK, QID
     Route: 048
  13. PRILOSEC [Concomitant]
     Indication: BARRETT'S OESOPHAGUS
     Dosage: 20 MG, QD
     Route: 048
  14. SENOKOT [Concomitant]
     Indication: CONSTIPATION
     Dosage: 8.6 MG, UNK
     Route: 048
     Dates: start: 20120228
  15. FLOMAX [Concomitant]
     Indication: BENIGN PROSTATIC HYPERPLASIA
     Dosage: 0.4 MG, QD
     Route: 048
     Dates: start: 20110912
  16. FORTEO [Suspect]
     Indication: OSTEOPOROSIS
     Dosage: 20 UG, QD
     Route: 058
  17. ASPIRIN [Concomitant]
     Indication: ROUTINE HEALTH MAINTENANCE
     Dosage: 162 MG, QD
     Route: 048
  18. ZOLPIDEM [Concomitant]
     Indication: INSOMNIA
     Dosage: 5 MG, PRN
     Route: 048
     Dates: start: 20120228

REACTIONS (2)
  - FALL [None]
  - PELVIC FRACTURE [None]
